FAERS Safety Report 19993267 (Version 1)
Quarter: 2021Q4

REPORT INFORMATION
  Report Type: Spontaneous
  Country: US (occurrence: US)
  Receive Date: 20211026
  Receipt Date: 20211026
  Transmission Date: 20220303
  Serious: Yes (Other)
  Sender: FDA-Public Use
  Company Number: US-LUPIN PHARMACEUTICALS INC.-2021-20504

PATIENT
  Age: 48 Year
  Sex: Male

DRUGS (17)
  1. CARVEDILOL [Suspect]
     Active Substance: CARVEDILOL
     Indication: Hypertension
     Dosage: 40 MILLIGRAM DOSE DECREASED
     Route: 065
  2. CARVEDILOL [Suspect]
     Active Substance: CARVEDILOL
     Dosage: 50 MILLIGRAM, BID
     Route: 065
  3. CARVEDILOL [Suspect]
     Active Substance: CARVEDILOL
     Dosage: 25 MILLIGRAM, QD MORNING
     Route: 065
  4. CARVEDILOL [Suspect]
     Active Substance: CARVEDILOL
     Dosage: 12.5 MILLIGRAM, QD EVENING
     Route: 065
  5. AZOR [Suspect]
     Active Substance: AMLODIPINE BESYLATE\OLMESARTAN MEDOXOMIL
     Indication: Hypertension
     Dosage: UNK 20 MG AND 40 MG
     Route: 065
  6. AZOR [Suspect]
     Active Substance: AMLODIPINE BESYLATE\OLMESARTAN MEDOXOMIL
     Dosage: UNK DOSE DECREASED 10 MG/20 MG PER DAY
     Route: 065
  7. MAGNESIUM CITRATE [Concomitant]
     Active Substance: MAGNESIUM CITRATE
     Indication: Hypomagnesaemia
     Dosage: UNK
     Route: 065
  8. FUROSEMIDE [Concomitant]
     Active Substance: FUROSEMIDE
     Indication: Hypertension
     Dosage: UNK
     Route: 065
  9. VITAMIN E [Concomitant]
     Active Substance: .ALPHA.-TOCOPHEROL
     Indication: Supplementation therapy
     Dosage: UNK
     Route: 065
  10. FISH OIL [Concomitant]
     Active Substance: FISH OIL
     Indication: Supplementation therapy
     Dosage: UNK
     Route: 065
  11. ARGININE [Concomitant]
     Active Substance: ARGININE
     Indication: Supplementation therapy
     Dosage: 500 MILLIGRAM, QD
     Route: 065
  12. ARGININE [Concomitant]
     Active Substance: ARGININE
     Dosage: 3000 MILLIGRAM, QD
     Route: 065
  13. VITAMIN D3 [Concomitant]
     Active Substance: CHOLECALCIFEROL
     Indication: Vitamin D deficiency
     Dosage: 4000 INTERNATIONAL UNIT, QD FOR 3 MONTHS
     Route: 065
  14. CALCIUM ASCORBATE [Concomitant]
     Active Substance: CALCIUM ASCORBATE
     Indication: Antioxidant therapy
     Dosage: 2000 MILLIGRAM, QD
     Route: 065
  15. CALCIUM ASCORBATE [Concomitant]
     Active Substance: CALCIUM ASCORBATE
     Indication: Antiinflammatory therapy
  16. CINNAMON [Concomitant]
     Active Substance: CINNAMON
     Indication: Periodontal disease
     Dosage: UNK HALF TSP
     Route: 065
  17. COENZYME Q10 [Concomitant]
     Active Substance: DIETARY SUPPLEMENT\UBIDECARENONE
     Indication: Supplementation therapy
     Dosage: UNK
     Route: 065

REACTIONS (4)
  - Erectile dysfunction [Recovering/Resolving]
  - Dizziness [Recovered/Resolved]
  - Fatigue [Recovered/Resolved]
  - Asthenia [Recovered/Resolved]
